FAERS Safety Report 6069449-8 (Version None)
Quarter: 2009Q1

REPORT INFORMATION
  Report Type: 
  Country: None (occurrence: None)
  Receive Date: 20090206
  Receipt Date: 20090206
  Transmission Date: 20090719
  Serious: Yes (Other)
  Sender: FDA-Public Use
  Company Number: US-PFIZER INC-2008094366

PATIENT
  Sex: Female
  Weight: 62.727 kg

DRUGS (3)
  1. LYRICA [Suspect]
     Indication: ARTHRALGIA
     Route: 048
     Dates: start: 20081007, end: 20081013
  2. BENICAR HCT [Concomitant]
  3. AMITRIPTYLINE HCL [Concomitant]

REACTIONS (10)
  - ATRIAL FIBRILLATION [None]
  - DIZZINESS [None]
  - DYSPHASIA [None]
  - DYSPNOEA [None]
  - FEELING ABNORMAL [None]
  - HEART RATE INCREASED [None]
  - HYPOTENSION [None]
  - MUSCULOSKELETAL DISCOMFORT [None]
  - SOMNOLENCE [None]
  - TRANSIENT ISCHAEMIC ATTACK [None]
